FAERS Safety Report 12256829 (Version 1)
Quarter: 2016Q2

REPORT INFORMATION
  Report Type: Spontaneous
  Country: US (occurrence: US)
  Receive Date: 20160412
  Receipt Date: 20160412
  Transmission Date: 20160815
  Serious: Yes (Other)
  Sender: FDA-Public Use
  Company Number: US-GLAXOSMITHKLINE-US2016GSK042830

PATIENT
  Age: 42 Year
  Sex: Female

DRUGS (2)
  1. LAMICTAL [Suspect]
     Active Substance: LAMOTRIGINE
     Dosage: 25 MG TABLET UNKNOWN DOSING, U
  2. LAMICTAL [Suspect]
     Active Substance: LAMOTRIGINE
     Indication: EPILEPSY
     Dosage: 200 MG TABLET UNKNOWN DOSING, U

REACTIONS (2)
  - Seizure [Unknown]
  - Sciatica [Unknown]

NARRATIVE: CASE EVENT DATE: 201601
